FAERS Safety Report 13082984 (Version 1)
Quarter: 2017Q1

REPORT INFORMATION
  Report Type: Spontaneous
  Country: US (occurrence: US)
  Receive Date: 20170104
  Receipt Date: 20170104
  Transmission Date: 20170428
  Serious: No
  Sender: FDA-Public Use
  Company Number: US-AUROBINDO-AUR-APU-2016-14241

PATIENT
  Age: 65 Year
  Sex: Female
  Weight: 73.92 kg

DRUGS (3)
  1. TOPAMAX [Concomitant]
     Active Substance: TOPIRAMATE
     Indication: PRODUCT USED FOR UNKNOWN INDICATION
     Route: 065
  2. DULOXETINE DELAYED-RELEASE CAPSULES USP 30 MG [Suspect]
     Active Substance: DULOXETINE
     Indication: DEPRESSION
     Dosage: 30 MG, 3 TIMES AT NIGHT
     Route: 065
     Dates: start: 20161019
  3. NEXIUM [Concomitant]
     Active Substance: ESOMEPRAZOLE MAGNESIUM
     Indication: PRODUCT USED FOR UNKNOWN INDICATION
     Route: 065

REACTIONS (2)
  - Product substitution issue [Not Recovered/Not Resolved]
  - Drug ineffective [Not Recovered/Not Resolved]
